FAERS Safety Report 8073471-X (Version None)
Quarter: 2012Q1

REPORT INFORMATION
  Report Type: 
  Country: None (occurrence: None)
  Receive Date: 20120126
  Receipt Date: 20120126
  Transmission Date: 20120608
  Serious: Yes (Death)
  Sender: FDA-Public Use
  Company Number: None

PATIENT
  Sex: Male
  Weight: 95.254 kg

DRUGS (1)
  1. BUPRENORPHINE [Suspect]
     Dosage: 1 TABLET

REACTIONS (1)
  - COMPLETED SUICIDE [None]
